FAERS Safety Report 4942879-0 (Version None)
Quarter: 2006Q1

REPORT INFORMATION
  Report Type: 
  Country: None (occurrence: None)
  Receive Date: 20060309
  Receipt Date: 20060228
  Transmission Date: 20060701
  Serious: Yes (Hospitalization, Disabling, Other)
  Sender: FDA-Public Use
  Company Number: HUN/2006/0125

PATIENT
  Age: 85 Year
  Sex: Male

DRUGS (9)
  1. DISPERSIBLE ASPIRIN TABLETS BP 75 MG [Suspect]
     Dosage: 75 MG, QD; ORAL
     Route: 048
  2. PIROXICAM [Suspect]
     Dosage: 20 MG, QD; ORAL
     Route: 048
     Dates: start: 20041101
  3. DIPYRIDAMOLE [Suspect]
     Dosage: 200 MG, BID; ORAL
     Route: 048
  4. HYDROXOCOBALAMIN [Concomitant]
  5. LOPERAMIDE [Concomitant]
  6. FUROSEMIDE [Concomitant]
  7. GLYCERYL TRINITRATE [Concomitant]
  8. DILTIAZEM [Concomitant]
  9. CO-CARELDOPA (CARBIDIPA+LEVODOPA) [Concomitant]

REACTIONS (1)
  - VITREOUS HAEMORRHAGE [None]
